FAERS Safety Report 7409285-0 (Version None)
Quarter: 2011Q2

REPORT INFORMATION
  Report Type: 
  Country: None (occurrence: None)
  Receive Date: 20110412
  Receipt Date: 20101109
  Transmission Date: 20111010
  Serious: Yes (Hospitalization)
  Sender: FDA-Public Use
  Company Number: B0684064A

PATIENT
  Sex: Male
  Weight: 75 kg

DRUGS (20)
  1. GRAN [Concomitant]
     Dates: start: 20060804, end: 20060820
  2. CRAVIT [Concomitant]
     Route: 048
     Dates: end: 20060822
  3. MEROPEN [Concomitant]
     Dosage: 1G PER DAY
     Route: 042
     Dates: start: 20060817, end: 20060827
  4. ALKERAN [Suspect]
     Indication: ALLOGENIC BONE MARROW TRANSPLANTATION THERAPY
     Dosage: 60MGM2 PER DAY
     Route: 042
     Dates: start: 20060728, end: 20060730
  5. ZYLORIC [Concomitant]
     Route: 048
     Dates: end: 20060920
  6. FUNGUARD [Concomitant]
     Route: 042
     Dates: start: 20060804, end: 20060823
  7. METHOTREXATE [Concomitant]
     Indication: IMMUNOSUPPRESSION
     Route: 065
     Dates: start: 20060804, end: 20060809
  8. TAKEPRON [Concomitant]
     Route: 048
     Dates: end: 20060920
  9. TIENAM [Concomitant]
     Dates: start: 20060809, end: 20060816
  10. TACROLIMUS HYDRATE [Concomitant]
     Indication: IMMUNOSUPPRESSION
     Route: 065
     Dates: start: 20060802, end: 20060829
  11. ZOVIRAX [Concomitant]
     Route: 048
     Dates: end: 20060903
  12. GANCICLOVIR [Concomitant]
     Dates: start: 20060904, end: 20060915
  13. SOLU-MEDROL [Concomitant]
     Indication: IMMUNOSUPPRESSION
     Route: 042
     Dates: start: 20060830, end: 20060920
  14. EXACIN [Concomitant]
     Dates: start: 20060809, end: 20060816
  15. DORIPENEM [Concomitant]
     Route: 042
     Dates: start: 20060829, end: 20060904
  16. DIFLUCAN [Concomitant]
     Route: 048
     Dates: end: 20060803
  17. KYTRIL [Concomitant]
     Route: 042
     Dates: start: 20060728, end: 20060802
  18. URSO 250 [Concomitant]
     Route: 048
     Dates: end: 20060920
  19. DIFLUCAN [Concomitant]
     Route: 048
     Dates: start: 20060824, end: 20060920
  20. MAXIPIME [Concomitant]
     Route: 042
     Dates: start: 20060728, end: 20060801

REACTIONS (3)
  - DIARRHOEA [None]
  - ABDOMINAL PAIN [None]
  - PSEUDOMONAS INFECTION [None]
